FAERS Safety Report 13590787 (Version 1)
Quarter: 2017Q2

REPORT INFORMATION
  Report Type: Spontaneous
  Country: US (occurrence: US)
  Receive Date: 20170527
  Receipt Date: 20170527
  Transmission Date: 20170830
  Serious: No
  Sender: FDA-Public Use
  Company Number: None

PATIENT
  Age: 68 Year
  Sex: Female
  Weight: 88.98 kg

DRUGS (15)
  1. CITIRIZINE [Concomitant]
  2. ASPIRIN. [Concomitant]
     Active Substance: ASPIRIN
  3. BIOTIN [Concomitant]
     Active Substance: BIOTIN
  4. LOSARTAN. [Concomitant]
     Active Substance: LOSARTAN
  5. ATENOLOL. [Concomitant]
     Active Substance: ATENOLOL
  6. NORCO [Suspect]
     Active Substance: ACETAMINOPHEN\HYDROCODONE BITARTRATE
     Indication: SPINAL FUSION SURGERY
     Dosage: 1 TO 2 EVERY 4 TO 6 HRS
     Dates: start: 20170512, end: 20170513
  7. VITAMIN D [Concomitant]
     Active Substance: CHOLECALCIFEROL
  8. CO 2-10 (QUNOL) [Concomitant]
  9. TUMERIC [Concomitant]
     Active Substance: HERBALS\TURMERIC
  10. LEVOTHYROXIN [Concomitant]
     Active Substance: LEVOTHYROXINE
  11. ATORVASTATIN [Concomitant]
     Active Substance: ATORVASTATIN
  12. ZINC. [Concomitant]
     Active Substance: ZINC
  13. BOTOX [Concomitant]
     Active Substance: ONABOTULINUMTOXINA
  14. MAGNESIUM [Concomitant]
     Active Substance: MAGNESIUM
  15. PROBIOTIC [Concomitant]
     Active Substance: PROBIOTICS NOS

REACTIONS (9)
  - Pruritus [None]
  - Dizziness [None]
  - Speech disorder [None]
  - Dry mouth [None]
  - Disorientation [None]
  - Thinking abnormal [None]
  - Asthenia [None]
  - Rash [None]
  - Hallucination [None]

NARRATIVE: CASE EVENT DATE: 20170513
